FAERS Safety Report 23976295 (Version 1)
Quarter: 2024Q2

REPORT INFORMATION
  Report Type: Spontaneous
  Country: CN (occurrence: CN)
  Receive Date: 20240614
  Receipt Date: 20240614
  Transmission Date: 20240716
  Serious: Yes (Other)
  Sender: FDA-Public Use
  Company Number: CN-PFIZER INC-PV202400075934

PATIENT
  Age: 67 Year
  Sex: Female
  Weight: 53 kg

DRUGS (3)
  1. PACLITAXEL [Suspect]
     Active Substance: PACLITAXEL
     Indication: Chemotherapy
     Dosage: 257 MG, 1X/DAY
     Route: 041
     Dates: start: 20240506, end: 20240506
  2. TISLELIZUMAB [Concomitant]
     Active Substance: TISLELIZUMAB
     Indication: Chemotherapy
     Dosage: 0.2 G, 1X/DAY
     Route: 042
     Dates: start: 20240506, end: 20240506
  3. CISPLATIN [Concomitant]
     Active Substance: CISPLATIN
     Indication: Chemotherapy
     Dosage: 120 MG, 1X/DAY
     Route: 042
     Dates: start: 20240506, end: 20240506

REACTIONS (2)
  - Type IV hypersensitivity reaction [Recovering/Resolving]
  - Off label use [Unknown]

NARRATIVE: CASE EVENT DATE: 20240516
